FAERS Safety Report 5766163-0 (Version None)
Quarter: 2008Q2

REPORT INFORMATION
  Report Type: 
  Country: None (occurrence: None)
  Receive Date: 20080605
  Receipt Date: 20080530
  Transmission Date: 20081010
  Serious: Yes (Hospitalization)
  Sender: FDA-Public Use
  Company Number: 2008SP010397

PATIENT
  Age: 49 Year
  Sex: Male
  Weight: 70.9 kg

DRUGS (1)
  1. TEMODAL [Suspect]
     Indication: GLIOBLASTOMA MULTIFORME
     Dosage: ;PO
     Route: 048
     Dates: start: 20080408, end: 20080507

REACTIONS (11)
  - ABDOMINAL PAIN [None]
  - BACTERAEMIA [None]
  - CONFUSIONAL STATE [None]
  - ENTEROCOLITIS [None]
  - ISCHAEMIA [None]
  - LYMPHOPENIA [None]
  - NAUSEA [None]
  - OPPORTUNISTIC INFECTION [None]
  - PNEUMONIA [None]
  - SEPSIS [None]
  - VOMITING [None]
